FAERS Safety Report 20232291 (Version 1)
Quarter: 2021Q4

REPORT INFORMATION
  Report Type: Spontaneous
  Country: US (occurrence: None)
  Receive Date: 20211224
  Receipt Date: 20211224
  Transmission Date: 20220303
  Serious: No
  Sender: FDA-Public Use
  Company Number: None

PATIENT
  Age: 58 Year
  Sex: Female
  Weight: 62.55 kg

DRUGS (1)
  1. IBRANCE [Suspect]
     Active Substance: PALBOCICLIB
     Indication: Breast cancer
     Dosage: OTHER FREQUENCY : 1 QD 21 DAYS 7 OFF;?
     Route: 048
     Dates: start: 20210622

REACTIONS (2)
  - Therapy interrupted [None]
  - SARS-CoV-2 test positive [None]

NARRATIVE: CASE EVENT DATE: 20211209
